FAERS Safety Report 5087651-9 (Version None)
Quarter: 2006Q3

REPORT INFORMATION
  Report Type: 
  Country: None (occurrence: None)
  Receive Date: 20060727
  Receipt Date: 20060330
  Transmission Date: 20061208
  Serious: Yes (Other)
  Sender: FDA-Public Use
  Company Number: 2006046425

PATIENT
  Sex: Female
  Weight: 57.6068 kg

DRUGS (3)
  1. LYRICA [Suspect]
     Indication: FIBROMYALGIA
     Dosage: 150 MG (50 MG, 3 IN 1 D)
     Dates: start: 20051201
  2. OMEGA 3 (FISH OIL) [Concomitant]
  3. GLUCOSAMINE SULFATE [Concomitant]

REACTIONS (6)
  - CONFUSIONAL STATE [None]
  - DIZZINESS [None]
  - DRUG EFFECT DECREASED [None]
  - FEELING ABNORMAL [None]
  - MEMORY IMPAIRMENT [None]
  - PAIN [None]
